FAERS Safety Report 4617063-0 (Version None)
Quarter: 2005Q1

REPORT INFORMATION
  Report Type: 
  Country: None (occurrence: None)
  Receive Date: 20050323
  Receipt Date: 20050317
  Transmission Date: 20050727
  Serious: Yes (Hospitalization)
  Sender: FDA-Public Use
  Company Number: FI-JNJFOC-20050304074

PATIENT
  Age: 70 Year
  Sex: Male

DRUGS (6)
  1. SPORANOX [Suspect]
     Indication: ONYCHOMYCOSIS
     Dosage: 2 X 2 CAPS PER DAY.
     Route: 065
  2. LESCOL [Suspect]
     Indication: HYPERCHOLESTEROLAEMIA
     Route: 049
  3. LOGIMAX [Concomitant]
     Route: 049
  4. LOGIMAX [Concomitant]
     Indication: HYPERTONIA
     Route: 049
  5. ASPIRIN [Concomitant]
     Route: 049
  6. NITROMEX [Concomitant]
     Route: 049

REACTIONS (1)
  - EPISTAXIS [None]
